FAERS Safety Report 5746960-8 (Version None)
Quarter: 2008Q2

REPORT INFORMATION
  Report Type: 
  Country: None (occurrence: None)
  Receive Date: 20080519
  Receipt Date: 20070730
  Transmission Date: 20081010
  Serious: Yes (Other)
  Sender: FDA-Public Use
  Company Number: PHEH2007US10547

PATIENT
  Sex: Female

DRUGS (1)
  1. TEGRETOL-XR [Suspect]
     Indication: EPILEPSY
     Dosage: 400 MG, BID, ORAL
     Route: 048
     Dates: start: 20040101, end: 20070730

REACTIONS (6)
  - ANXIETY [None]
  - COUGH [None]
  - DEPRESSION [None]
  - PARANOIA [None]
  - SOMNOLENCE [None]
  - SUICIDAL IDEATION [None]
